FAERS Safety Report 18511774 (Version 1)
Quarter: 2020Q4

REPORT INFORMATION
  Report Type: Spontaneous
  Country: GB (occurrence: GB)
  Receive Date: 20201117
  Receipt Date: 20201117
  Transmission Date: 20210114
  Serious: Yes (Hospitalization, Other)
  Sender: FDA-Public Use
  Company Number: GB-TEVA-2020-GB-1848762

PATIENT
  Sex: Female

DRUGS (5)
  1. RITUXIMAB. [Suspect]
     Active Substance: RITUXIMAB
     Indication: STIFF PERSON SYNDROME
     Route: 065
     Dates: start: 2011, end: 2011
  2. PREDNISOLONE. [Suspect]
     Active Substance: PREDNISOLONE
     Indication: STIFF PERSON SYNDROME
     Dosage: 80 MILLIGRAM DAILY;
     Route: 048
     Dates: start: 2012
  3. METHYLPREDNISOLONE. [Suspect]
     Active Substance: METHYLPREDNISOLONE
     Indication: STIFF PERSON SYNDROME
     Dosage: 500 MILLIGRAM DAILY;
     Route: 042
     Dates: start: 2007, end: 2007
  4. INFLIXIMAB [Suspect]
     Active Substance: INFLIXIMAB
     Indication: STIFF PERSON SYNDROME
     Dosage: TWO INFUSIONS
     Route: 050
     Dates: start: 2011, end: 2011
  5. IMMUNOGLOBULIN (IMMUNOGLOBULIN NOS) [Suspect]
     Active Substance: IMMUNE GLOBULIN NOS
     Indication: STIFF PERSON SYNDROME
     Dosage: 10 COURSE OF IMMUNE-GLOBULIN; RECEIVED FROM 2006 TO 2007; AND ALSO IN 2010 AT UNKNOW DOSE
     Route: 042

REACTIONS (7)
  - Unmasking of previously unidentified disease [Unknown]
  - Drug ineffective [Unknown]
  - Respiratory failure [Unknown]
  - Diabetic ketoacidosis [Unknown]
  - Pneumonia [Unknown]
  - Type 1 diabetes mellitus [Unknown]
  - Sepsis [Unknown]

NARRATIVE: CASE EVENT DATE: 2012
